FAERS Safety Report 24152554 (Version 3)
Quarter: 2024Q3

REPORT INFORMATION
  Report Type: Spontaneous
  Country: US (occurrence: US)
  Receive Date: 20240730
  Receipt Date: 20240829
  Transmission Date: 20241017
  Serious: No
  Sender: INCYTE
  Company Number: US-INCYTE CORPORATION-2024IN007739

PATIENT

DRUGS (1)
  1. JAKAFI [Suspect]
     Active Substance: RUXOLITINIB
     Indication: Polycythaemia vera
     Dosage: 5 MILLIGRAM, BID
     Route: 048
     Dates: start: 20200918

REACTIONS (7)
  - Blood iron abnormal [Unknown]
  - Fall [Unknown]
  - Arthritis [Unknown]
  - Malaise [Unknown]
  - Decreased activity [Unknown]
  - Cardiac disorder [Unknown]
  - Contusion [Unknown]
